FAERS Safety Report 9768085 (Version 5)
Quarter: 2015Q2

REPORT INFORMATION
  Report Type: Report from Study
  Country: US (occurrence: US)
  Receive Date: 20131217
  Receipt Date: 20150408
  Transmission Date: 20150821
  Serious: Yes (Other)
  Sender: FDA-Public Use
  Company Number: US-GLAXOSMITHKLINE-A0917237F

PATIENT
  Age: 71 Year
  Sex: Male
  Weight: 126.3 kg

DRUGS (4)
  1. DABRAFENIB CAPSULE [Suspect]
     Active Substance: DABRAFENIB
     Dosage: 100 MG, BID
     Route: 048
     Dates: start: 20110405
  2. TRAMETINIB TABLET [Suspect]
     Active Substance: TRAMETINIB
     Dosage: 2 MG, QD
     Route: 048
     Dates: start: 20110322
  3. DABRAFENIB CAPSULE [Suspect]
     Active Substance: DABRAFENIB
     Indication: METASTATIC MALIGNANT MELANOMA
     Dosage: 150 MG, BID
     Route: 048
     Dates: start: 20101119
  4. TRAMETINIB TABLET [Suspect]
     Active Substance: TRAMETINIB
     Indication: METASTATIC MALIGNANT MELANOMA
     Dosage: 1 MG, QD
     Route: 048
     Dates: start: 20101119, end: 20110321

REACTIONS (1)
  - Granulomatous dermatitis [Recovered/Resolved]

NARRATIVE: CASE EVENT DATE: 201203
